FAERS Safety Report 4654855-6 (Version None)
Quarter: 2005Q2

REPORT INFORMATION
  Report Type: 
  Country: None (occurrence: None)
  Receive Date: 20050504
  Receipt Date: 20050418
  Transmission Date: 20051028
  Serious: Yes (Death, Life-Threatening, Other)
  Sender: FDA-Public Use
  Company Number: 2005JP000352

PATIENT
  Age: 51 Year
  Sex: Female
  Weight: 57.1 kg

DRUGS (10)
  1. TACROLIMUS CAPSULES (TACROLIMUS CAPSULES) [Suspect]
     Indication: LUNG TRANSPLANT
     Dosage: 2.00 MG D, ORAL; 3.00 MG, ORAL
     Route: 048
     Dates: start: 20040515, end: 20040515
  2. TACROLIMUS CAPSULES (TACROLIMUS CAPSULES) [Suspect]
     Indication: LUNG TRANSPLANT
     Dosage: 2.00 MG D, ORAL; 3.00 MG, ORAL
     Route: 048
     Dates: start: 20040516, end: 20040516
  3. TACROLIMUS CAPSULES (TACROLIMUS CAPSULES) [Suspect]
     Indication: LUNG TRANSPLANT
     Dosage: 2.00 MG D, ORAL; 3.00 MG, ORAL
     Route: 048
     Dates: start: 20040517, end: 20040526
  4. NEORAL [Suspect]
     Indication: LUNG TRANSPLANT
     Dosage: ORAL
     Route: 048
     Dates: start: 20040510, end: 20040514
  5. IMURAN [Suspect]
     Indication: LUNG TRANSPLANT
     Dosage: 75.00 MG, D, ORAL
     Route: 048
     Dates: start: 20040511, end: 20040514
  6. ELLCEPT (MYCOPHENOLATE MOFETIL) PER ORAL NOS [Suspect]
     Indication: LUNG TRANSPLANT
     Dosage: 1500.00 MG, ORAL
     Route: 048
     Dates: start: 20040515, end: 20040525
  7. ORTHOCLONE OKT3 (MUROMONAB-CD3) INJECTION [Suspect]
     Dosage: IV NOS
     Route: 042
     Dates: start: 20040501
  8. PREDNISOLONE [Concomitant]
  9. METHYLPREDNISOLONE [Concomitant]
  10. INJECTION [Concomitant]

REACTIONS (3)
  - PULMONARY ALVEOLAR HAEMORRHAGE [None]
  - PULMONARY OEDEMA [None]
  - RENAL FAILURE [None]
